FAERS Safety Report 5765836-3 (Version None)
Quarter: 2008Q2

REPORT INFORMATION
  Report Type: 
  Country: None (occurrence: None)
  Receive Date: 20080605
  Receipt Date: 20080520
  Transmission Date: 20081010
  Serious: Yes (Hospitalization)
  Sender: FDA-Public Use
  Company Number: JPI-P-003353

PATIENT
  Age: 33 Year
  Sex: Male

DRUGS (7)
  1. LUVOX [Suspect]
     Indication: DYSTHYMIC DISORDER
     Dosage: 1, 2 DOSAGE FORMS, 1 D, ORAL
     Route: 048
     Dates: start: 20031101, end: 20031124
  2. LUVOX [Suspect]
     Indication: DYSTHYMIC DISORDER
     Dosage: 1, 2 DOSAGE FORMS, 1 D, ORAL
     Route: 048
     Dates: start: 20031125, end: 20031201
  3. PAROXETINE HCL [Suspect]
     Indication: DYSTHYMIC DISORDER
     Dosage: 1 DOSAGE FORMS, 1 D, ORAL
     Route: 048
     Dates: start: 20031101, end: 20031101
  4. ALPRAZOLAM [Concomitant]
  5. FLUNITRAZEPAM (FLUNITRAZEPAM) [Concomitant]
  6. CLOTIAZEPAM (CLOTIAZEPAM) [Concomitant]
  7. DOMPERIDONE (DOMPERIDONE) [Concomitant]

REACTIONS (6)
  - ACTIVATION SYNDROME [None]
  - HALLUCINATION [None]
  - HOMICIDAL IDEATION [None]
  - LABORATORY TEST ABNORMAL [None]
  - NAUSEA [None]
  - SUICIDAL IDEATION [None]
